FAERS Safety Report 17532153 (Version 2)
Quarter: 2020Q3

REPORT INFORMATION
  Report Type: Spontaneous
  Country: US (occurrence: US)
  Receive Date: 20200312
  Receipt Date: 20200728
  Transmission Date: 20201102
  Serious: Yes (Other)
  Sender: FDA-Public Use
  Company Number: US-ASTRAZENECA-2020SE34235

PATIENT
  Age: 21543 Day
  Sex: Male
  Weight: 108.9 kg

DRUGS (43)
  1. OMEPRAZOLE. [Suspect]
     Active Substance: OMEPRAZOLE
     Indication: GASTROOESOPHAGEAL REFLUX DISEASE
     Dosage: GENERIC
     Route: 065
     Dates: start: 2016
  2. LANSOPRAZOLE. [Suspect]
     Active Substance: LANSOPRAZOLE
     Indication: GASTROOESOPHAGEAL REFLUX DISEASE
     Route: 065
     Dates: start: 2016
  3. TAGAMET [Concomitant]
     Active Substance: CIMETIDINE
     Indication: GASTROOESOPHAGEAL REFLUX DISEASE
     Route: 065
     Dates: start: 1996
  4. VITAMIN D [Concomitant]
     Active Substance: VITAMIN D NOS
     Dates: start: 1995, end: 1997
  5. CEPHALEXIN. [Concomitant]
     Active Substance: CEPHALEXIN
     Dates: start: 1995, end: 1997
  6. MELOXICAM. [Concomitant]
     Active Substance: MELOXICAM
     Dates: start: 1995, end: 1997
  7. SIMVASTATIN. [Concomitant]
     Active Substance: SIMVASTATIN
     Dates: start: 1995, end: 1997
  8. SUCRALFATE. [Concomitant]
     Active Substance: SUCRALFATE
     Dates: start: 1995, end: 1997
  9. NEXIUM [Suspect]
     Active Substance: ESOMEPRAZOLE MAGNESIUM
     Indication: GASTROOESOPHAGEAL REFLUX DISEASE
     Route: 048
     Dates: start: 20140303
  10. FAMOTIDINE. [Concomitant]
     Active Substance: FAMOTIDINE
     Dates: start: 1995, end: 1997
  11. METRONIDAZOLE. [Concomitant]
     Active Substance: METRONIDAZOLE
     Dates: start: 1995, end: 1997
  12. NEXIUM [Suspect]
     Active Substance: ESOMEPRAZOLE MAGNESIUM
     Indication: GASTROOESOPHAGEAL REFLUX DISEASE
     Route: 048
  13. LANSOPRAZOLE. [Suspect]
     Active Substance: LANSOPRAZOLE
     Indication: GASTROOESOPHAGEAL REFLUX DISEASE
     Route: 065
     Dates: start: 20160611
  14. PEPCID [Concomitant]
     Active Substance: FAMOTIDINE
     Indication: GASTROOESOPHAGEAL REFLUX DISEASE
     Route: 065
     Dates: start: 1995, end: 1997
  15. IBUPROFEN. [Concomitant]
     Active Substance: IBUPROFEN
     Indication: HEADACHE
     Dates: start: 2000, end: 2015
  16. MAALEX [Concomitant]
     Dates: start: 1995, end: 1997
  17. SYNTHROID [Concomitant]
     Active Substance: LEVOTHYROXINE SODIUM
     Dates: start: 1995, end: 1997
  18. LISINOPRIL. [Concomitant]
     Active Substance: LISINOPRIL
     Dates: start: 1995, end: 1997
  19. VIAGRA [Concomitant]
     Active Substance: SILDENAFIL CITRATE
     Dates: start: 1995, end: 1997
  20. TYLENOL [Concomitant]
     Active Substance: ACETAMINOPHEN
     Indication: HEADACHE
     Dates: start: 2000
  21. AMLODIPINE [Concomitant]
     Active Substance: AMLODIPINE BESYLATE
     Dates: start: 1995, end: 1997
  22. ATENOLOL. [Concomitant]
     Active Substance: ATENOLOL
     Dates: start: 1995, end: 1997
  23. MONTELUKAST [Concomitant]
     Active Substance: MONTELUKAST SODIUM
     Dates: start: 1995, end: 1997
  24. MUCINEX [Concomitant]
     Active Substance: GUAIFENESIN
     Dates: start: 1995, end: 1997
  25. FLUTICASONE. [Concomitant]
     Active Substance: FLUTICASONE
     Dates: start: 1995, end: 1997
  26. HUMULIN NOS [Concomitant]
     Active Substance: INSULIN HUMAN
     Dates: start: 1995, end: 1997
  27. OFLOXACIN. [Concomitant]
     Active Substance: OFLOXACIN
     Dates: start: 1995, end: 1997
  28. RANITIDINE. [Concomitant]
     Active Substance: RANITIDINE
     Dates: start: 1995, end: 1997
  29. NEXIUM [Suspect]
     Active Substance: ESOMEPRAZOLE MAGNESIUM
     Indication: GASTROOESOPHAGEAL REFLUX DISEASE
     Route: 048
     Dates: start: 2000, end: 2017
  30. ZANTAC [Concomitant]
     Active Substance: RANITIDINE HYDROCHLORIDE
     Indication: GASTROOESOPHAGEAL REFLUX DISEASE
     Route: 065
     Dates: start: 1997
  31. CLARITHROMYCIN. [Concomitant]
     Active Substance: CLARITHROMYCIN
     Dates: start: 1995, end: 1997
  32. HYDROCHLOROTHIAZIDE. [Concomitant]
     Active Substance: HYDROCHLOROTHIAZIDE
     Dates: start: 1995, end: 1997
  33. LEVOFLOXACIN. [Concomitant]
     Active Substance: LEVOFLOXACIN
     Dates: start: 1995, end: 1997
  34. SPIRIVA [Concomitant]
     Active Substance: TIOTROPIUM BROMIDE MONOHYDRATE
     Dates: start: 1995, end: 1997
  35. ZANTAC [Concomitant]
     Active Substance: RANITIDINE HYDROCHLORIDE
     Indication: GASTROOESOPHAGEAL REFLUX DISEASE
     Route: 065
     Dates: start: 1996
  36. AMOXICILLIN. [Concomitant]
     Active Substance: AMOXICILLIN
     Dates: start: 1995, end: 1997
  37. CYCLOBENZAPRINE. [Concomitant]
     Active Substance: CYCLOBENZAPRINE
     Dates: start: 1995, end: 1997
  38. HYDROCODONEACETAMINE [Concomitant]
     Dates: start: 1995, end: 1997
  39. OMEPRAZOLE. [Suspect]
     Active Substance: OMEPRAZOLE
     Indication: GASTROOESOPHAGEAL REFLUX DISEASE
     Dosage: GENERIC
     Route: 065
     Dates: start: 2012
  40. ASPIRIN. [Concomitant]
     Active Substance: ASPIRIN
     Indication: CARDIOVASCULAR DISORDER
     Dates: start: 2015
  41. AZELASTINE. [Concomitant]
     Active Substance: AZELASTINE HYDROCHLORIDE
     Dates: start: 1995, end: 1997
  42. LEVOTHYYROXINE [Concomitant]
     Dates: start: 1995, end: 1997
  43. METOCLOPRAMID [Concomitant]
     Active Substance: METOCLOPRAMIDE
     Dates: start: 1995, end: 1997

REACTIONS (2)
  - Chronic kidney disease [Not Recovered/Not Resolved]
  - Renal failure [Unknown]

NARRATIVE: CASE EVENT DATE: 20160817
